FAERS Safety Report 25503527 (Version 1)
Quarter: 2025Q3

REPORT INFORMATION
  Report Type: Spontaneous
  Country: US (occurrence: None)
  Receive Date: 20250701
  Receipt Date: 20250701
  Transmission Date: 20251020
  Serious: No
  Sender: FDA-CTU
  Company Number: None

PATIENT
  Sex: Female

DRUGS (3)
  1. WINREVAIR [Suspect]
     Active Substance: SOTATERCEPT-CSRK
     Indication: Pulmonary arterial hypertension
     Route: 058
     Dates: start: 20240711
  2. UPTRAVI [Suspect]
     Active Substance: SELEXIPAG
  3. OPSUMIT [Suspect]
     Active Substance: MACITENTAN

REACTIONS (2)
  - Hepatic cirrhosis [None]
  - Therapy interrupted [None]
